FAERS Safety Report 17285744 (Version 1)
Quarter: 2020Q1

REPORT INFORMATION
  Report Type: Spontaneous
  Country: SA (occurrence: SA)
  Receive Date: 20200118
  Receipt Date: 20200118
  Transmission Date: 20200409
  Serious: Yes (Other)
  Sender: FDA-Public Use
  Company Number: SA-ROCHE-2463356

PATIENT
  Sex: Female

DRUGS (1)
  1. XOLAIR [Suspect]
     Active Substance: OMALIZUMAB
     Indication: ASTHMA
     Dosage: 300 MG, QMO (2 VIALS PER MONTH)
     Route: 065
     Dates: start: 2016

REACTIONS (6)
  - Dyspnoea [Unknown]
  - Chest discomfort [Unknown]
  - Anaphylactic reaction [Unknown]
  - Pruritus [Unknown]
  - Erythema [Unknown]
  - Hypotension [Unknown]
